FAERS Safety Report 5295526-5 (Version None)
Quarter: 2007Q2

REPORT INFORMATION
  Report Type: 
  Country: None (occurrence: None)
  Receive Date: 20070405
  Receipt Date: 20070322
  Transmission Date: 20071010
  Serious: Yes (Death, Hospitalization)
  Sender: FDA-Public Use
  Company Number: 237339

PATIENT
  Age: 64 Year
  Sex: Male
  Weight: 60 kg

DRUGS (3)
  1. AVASTIN [Suspect]
     Indication: COLORECTAL CANCER METASTATIC
     Dosage: 430 MG, UNK, INTRAVENOUS
     Route: 042
     Dates: start: 20051208
  2. CAPECITABINE (CAPECITABINE) [Suspect]
     Indication: COLORECTAL CANCER METASTATIC
     Dates: start: 20051208, end: 20060720
  3. OXALIPLATIN [Suspect]
     Indication: COLORECTAL CANCER METASTATIC
     Dates: start: 20051208

REACTIONS (1)
  - RECTAL HAEMORRHAGE [None]
